FAERS Safety Report 21759754 (Version 1)
Quarter: 2022Q4

REPORT INFORMATION
  Report Type: Spontaneous
  Country: CN (occurrence: CN)
  Receive Date: 20221221
  Receipt Date: 20221221
  Transmission Date: 20230113
  Serious: Yes (Hospitalization, Other)
  Sender: FDA-Public Use
  Company Number: CN-Accord-292387

PATIENT
  Age: 19 Year
  Sex: Male

DRUGS (13)
  1. MONTELUKAST [Suspect]
     Active Substance: MONTELUKAST SODIUM
     Indication: Asthma
     Dates: start: 2019
  2. FOSTER [Concomitant]
     Active Substance: BECLOMETHASONE\FORMOTEROL
     Indication: Asthma
     Dosage: 200/12 UG BID, TWO PUFFS TWICE/DAY,
     Dates: start: 2019
  3. KETOTIFEN [Concomitant]
     Active Substance: KETOTIFEN
     Indication: Asthma
     Dates: start: 2019
  4. THEOPHYLLINE ANHYDROUS [Concomitant]
     Active Substance: THEOPHYLLINE ANHYDROUS
     Indication: Asthma
     Dates: start: 2019
  5. NASONEX [Concomitant]
     Active Substance: MOMETASONE FUROATE
     Indication: Asthma
     Dosage: MOMETASONE FUROATE NASAL SPRAY (NASONEX),
     Dates: start: 2019
  6. TIOTROPIUM [Concomitant]
     Active Substance: TIOTROPIUM
     Indication: Asthma
     Dosage: 5 UG QD
     Dates: start: 2019
  7. AZELASTINE [Concomitant]
     Active Substance: AZELASTINE
     Indication: Asthma
     Dates: start: 2019
  8. MOXIFLOXACIN HYDROCHLORIDE [Concomitant]
     Active Substance: MOXIFLOXACIN HYDROCHLORIDE
     Indication: Pneumonia
     Dosage: 400MG I.V. QD
     Dates: start: 201908
  9. OMALIZUMAB [Concomitant]
     Active Substance: OMALIZUMAB
     Indication: Pneumonia
     Dosage: 600 MG H
     Dates: start: 20190827
  10. PULMICORT TURBUHALER [Concomitant]
     Active Substance: BUDESONIDE
     Indication: Pneumonia
     Dosage: PULMICORT + COMBIVENT NEBULIZATION
     Dates: start: 201908
  11. COMBIVENT [Concomitant]
     Active Substance: ALBUTEROL SULFATE\IPRATROPIUM BROMIDE
     Indication: Pneumonia
     Dosage: PULMICORT + COMBIVENT NEBULIZATION
     Dates: start: 201908
  12. PIPERACILLIN AND TAZOBACTAM [Concomitant]
     Active Substance: PIPERACILLIN SODIUM\TAZOBACTAM SODIUM
     Indication: Antibiotic therapy
     Dosage: 2.5 G IV BID
     Dates: start: 201908
  13. MOXIFLOXACIN HYDROCHLORIDE [Concomitant]
     Active Substance: MOXIFLOXACIN HYDROCHLORIDE
     Indication: Pneumonia
     Dosage: 400 MG PO, QD
     Route: 048
     Dates: start: 201908

REACTIONS (1)
  - Eosinophilic granulomatosis with polyangiitis [Recovered/Resolved]
